FAERS Safety Report 5963309-6 (Version None)
Quarter: 2008Q4

REPORT INFORMATION
  Report Type: 
  Country: None (occurrence: None)
  Receive Date: 20081124
  Receipt Date: 20081118
  Transmission Date: 20090506
  Serious: Yes (Congenital Anomaly)
  Sender: FDA-Public Use
  Company Number: A0662880A

PATIENT
  Sex: Female

DRUGS (1)
  1. PAXIL [Suspect]
     Indication: DEPRESSION
     Dates: start: 19970101, end: 19990101

REACTIONS (7)
  - AORTA HYPOPLASIA [None]
  - COARCTATION OF THE AORTA [None]
  - DRUG EXPOSURE DURING PREGNANCY [None]
  - HEART DISEASE CONGENITAL [None]
  - HYPOPLASTIC RIGHT HEART SYNDROME [None]
  - SUBVALVULAR AORTIC STENOSIS [None]
  - TRANSPOSITION OF THE GREAT VESSELS [None]
